FAERS Safety Report 10794654 (Version 2)
Quarter: 2015Q1

REPORT INFORMATION
  Report Type: Spontaneous
  Country: JP (occurrence: JP)
  Receive Date: 20150213
  Receipt Date: 20150325
  Transmission Date: 20150721
  Serious: Yes (Death)
  Sender: FDA-Public Use
  Company Number: JP-B.I. PHARMACEUTICALS,INC./RIDGEFIELD-2015-BI-07548NB

PATIENT
  Age: 59 Year
  Sex: Male

DRUGS (2)
  1. GILOTRIF [Suspect]
     Active Substance: AFATINIB
     Indication: LUNG NEOPLASM MALIGNANT
     Dosage: 40 MG
     Route: 048
     Dates: start: 20141209, end: 20150113
  2. AVASTIN [Concomitant]
     Active Substance: BEVACIZUMAB
     Indication: LUNG NEOPLASM MALIGNANT
     Dosage: DAILY DOSE: 15MG/KG/1TIME/3WEEK
     Route: 042
     Dates: start: 20141209, end: 20150105

REACTIONS (5)
  - Diarrhoea [Recovered/Resolved]
  - Seizure [Fatal]
  - Metastases to meninges [Fatal]
  - Hypoxia [Fatal]
  - Rash [Unknown]

NARRATIVE: CASE EVENT DATE: 20141210
